FAERS Safety Report 17780621 (Version 1)
Quarter: 2020Q2

REPORT INFORMATION
  Report Type: Spontaneous
  Country: CA (occurrence: CA)
  Receive Date: 20200514
  Receipt Date: 20200514
  Transmission Date: 20200714
  Serious: Yes (Other)
  Sender: FDA-Public Use
  Company Number: CA-SA-2020SA121996

PATIENT
  Age: 73 Year
  Sex: Male
  Weight: 56 kg

DRUGS (22)
  1. ESBRIET [Suspect]
     Active Substance: PIRFENIDONE
     Dosage: 267 MG
     Route: 048
  2. ESBRIET [Suspect]
     Active Substance: PIRFENIDONE
     Dosage: 801 MG
     Route: 048
  3. ESBRIET [Suspect]
     Active Substance: PIRFENIDONE
     Dosage: 801 MG, TID
     Route: 048
  4. HYDROCORTISONE. [Concomitant]
     Active Substance: HYDROCORTISONE
  5. PANTOPRAZOLE [Suspect]
     Active Substance: PANTOPRAZOLE
     Indication: PRODUCT USED FOR UNKNOWN INDICATION
     Dosage: 40 MG, QD
     Route: 048
  6. ESBRIET [Suspect]
     Active Substance: PIRFENIDONE
     Dosage: UNK UNK, TID
     Route: 048
  7. ESBRIET [Suspect]
     Active Substance: PIRFENIDONE
     Dosage: 534 MG, TID
     Route: 048
  8. ESBRIET [Suspect]
     Active Substance: PIRFENIDONE
     Indication: IDIOPATHIC PULMONARY FIBROSIS
     Dosage: 2403 MG, QD
     Route: 048
  9. ESBRIET [Suspect]
     Active Substance: PIRFENIDONE
     Dosage: 534 MG, TID
     Route: 048
  10. ESBRIET [Suspect]
     Active Substance: PIRFENIDONE
     Dosage: 801 MG, TID
     Route: 048
  11. ESBRIET [Suspect]
     Active Substance: PIRFENIDONE
     Dosage: 267 MG, TID
     Route: 048
  12. ESBRIET [Suspect]
     Active Substance: PIRFENIDONE
     Dosage: UNK
     Route: 048
  13. CLOPIDOGREL BISULFATE. [Concomitant]
     Active Substance: CLOPIDOGREL BISULFATE
     Dosage: 75 MG, QD
  14. ESBRIET [Suspect]
     Active Substance: PIRFENIDONE
     Dosage: 801 MG, TID
     Route: 048
  15. RANITIDINE. [Suspect]
     Active Substance: RANITIDINE
     Indication: PRODUCT USED FOR UNKNOWN INDICATION
     Dosage: 150 MG, BID
     Route: 048
  16. ESBRIET [Suspect]
     Active Substance: PIRFENIDONE
     Dosage: 801 MG, TID
     Route: 048
  17. ESBRIET [Suspect]
     Active Substance: PIRFENIDONE
     Dosage: 267 MG, TID
     Route: 048
  18. ESBRIET [Suspect]
     Active Substance: PIRFENIDONE
     Dosage: 267 MG, TID
     Route: 048
  19. ESBRIET [Suspect]
     Active Substance: PIRFENIDONE
     Dosage: 801 MG, TID
     Route: 048
  20. ESBRIET [Suspect]
     Active Substance: PIRFENIDONE
     Dosage: 801 MG, BID
     Route: 048
  21. AMLODIPINE [Concomitant]
     Active Substance: AMLODIPINE BESYLATE
     Dosage: 5 MG, QD
  22. RABEPRAZOLE [Concomitant]
     Active Substance: RABEPRAZOLE
     Dosage: 20 MG, QD

REACTIONS (15)
  - Decreased appetite [Not Recovered/Not Resolved]
  - Dyspnoea [Not Recovered/Not Resolved]
  - Weight decreased [Not Recovered/Not Resolved]
  - Dyspepsia [Not Recovered/Not Resolved]
  - Asthenia [Not Recovered/Not Resolved]
  - Rash [Not Recovered/Not Resolved]
  - Cough [Not Recovered/Not Resolved]
  - Nasopharyngitis [Not Recovered/Not Resolved]
  - Influenza [Not Recovered/Not Resolved]
  - Rhinorrhoea [Not Recovered/Not Resolved]
  - Sputum discoloured [Not Recovered/Not Resolved]
  - Insomnia [Not Recovered/Not Resolved]
  - Dizziness [Not Recovered/Not Resolved]
  - Skin lesion [Not Recovered/Not Resolved]
  - Fatigue [Not Recovered/Not Resolved]
